FAERS Safety Report 23073784 (Version 1)
Quarter: 2023Q4

REPORT INFORMATION
  Report Type: Report from Study
  Country: US (occurrence: None)
  Receive Date: 20231017
  Receipt Date: 20231017
  Transmission Date: 20240110
  Serious: Yes (Hospitalization, Other)
  Sender: FDA-Public Use
  Company Number: 2023A229777

PATIENT
  Sex: Female

DRUGS (1)
  1. BRILINTA [Suspect]
     Active Substance: TICAGRELOR
     Route: 048

REACTIONS (8)
  - Condition aggravated [Unknown]
  - Chest discomfort [Unknown]
  - Feeling abnormal [Unknown]
  - Dyspnoea [Unknown]
  - Chest discomfort [Unknown]
  - Chest pain [Unknown]
  - Gait disturbance [Unknown]
  - Drug ineffective [Unknown]
